FAERS Safety Report 25267695 (Version 3)
Quarter: 2025Q3

REPORT INFORMATION
  Report Type: Spontaneous
  Country: US (occurrence: US)
  Receive Date: 20250505
  Receipt Date: 20250728
  Transmission Date: 20251021
  Serious: Yes (Other)
  Sender: ALEXION PHARMACEUTICALS
  Company Number: US-AstraZeneca-CH-00858166AP

PATIENT
  Sex: Female

DRUGS (1)
  1. SYMBICORT AEROSPHERE [Suspect]
     Active Substance: BUDESONIDE\FORMOTEROL FUMARATE
     Route: 065

REACTIONS (7)
  - Cerebrovascular accident [Unknown]
  - Cataract [Unknown]
  - Stress [Unknown]
  - Eye disorder [Unknown]
  - Vision blurred [Unknown]
  - Wrong technique in product usage process [Unknown]
  - Irritability [Unknown]

NARRATIVE: CASE EVENT DATE: 20250101
